FAERS Safety Report 9506652 (Version 1)
Quarter: 2013Q3

REPORT INFORMATION
  Report Type: Spontaneous
  Country: FR (occurrence: FR)
  Receive Date: 20130907
  Receipt Date: 20130907
  Transmission Date: 20140515
  Serious: Yes (Hospitalization)
  Sender: FDA-Public Use
  Company Number: FR-LUNDBECK-DKLU1093395

PATIENT
  Age: 37 Year
  Sex: Female

DRUGS (1)
  1. ONFI [Suspect]
     Indication: ANXIETY
     Route: 048

REACTIONS (1)
  - Coma [Unknown]
